FAERS Safety Report 8577681-4 (Version None)
Quarter: 2012Q3

REPORT INFORMATION
  Report Type: 
  Country: None (occurrence: None)
  Receive Date: 20120807
  Receipt Date: 20120731
  Transmission Date: 20120928
  Serious: Yes (Hospitalization)
  Sender: FDA-Public Use
  Company Number: FI-GILEAD-2012-0059170

PATIENT
  Sex: Male

DRUGS (1)
  1. VISTIDE [Suspect]
     Indication: RESPIRATORY PAPILLOMA
     Dosage: UNK
     Route: 042
     Dates: start: 20050901, end: 20080901

REACTIONS (1)
  - GLIOMA [None]
